FAERS Safety Report 7135692-X (Version None)
Quarter: 2010Q4

REPORT INFORMATION
  Report Type: 
  Country: None (occurrence: None)
  Receive Date: 20101203
  Receipt Date: 20101123
  Transmission Date: 20110411
  Serious: Yes (Hospitalization)
  Sender: FDA-Public Use
  Company Number: FR-PFIZER INC-FR-WYE-G04724809

PATIENT
  Age: 73 Year
  Sex: Male
  Weight: 61.2 kg

DRUGS (7)
  1. TEMSIROLIMUS [Suspect]
     Indication: METASTATIC RENAL CELL CARCINOMA
     Dosage: 25 MG, WEEKLY
     Route: 042
     Dates: start: 20090325, end: 20091014
  2. AVASTIN [Suspect]
     Indication: METASTATIC RENAL CELL CARCINOMA
     Dosage: 600 MG 1 TIME EVERY 2 WEEKS
     Route: 042
     Dates: start: 20090325, end: 20090909
  3. PRACTAZIN [Concomitant]
     Dosage: .5 TABLET 1 TIME PER DAY
     Route: 048
  4. ASPEGIC 1000 [Concomitant]
     Dosage: 100 MG, 1X/DAY
     Route: 048
  5. TENORMIN [Concomitant]
     Dosage: 100 MG, 1X/DAY
     Route: 048
  6. FENOFIBRATE [Concomitant]
     Dosage: 160 MG, 1X/DAY
     Route: 048
  7. OMEPRAZOLE [Concomitant]
     Dosage: 20 MG, 1X/DAY
     Route: 048

REACTIONS (1)
  - OROANTRAL FISTULA [None]
